FAERS Safety Report 10176296 (Version 1)
Quarter: 2014Q2

REPORT INFORMATION
  Report Type: Spontaneous
  Country: US (occurrence: US)
  Receive Date: 20140516
  Receipt Date: 20140516
  Transmission Date: 20141212
  Serious: No
  Sender: FDA-Public Use
  Company Number: US-PFIZER INC-2014133239

PATIENT
  Age: 53 Year
  Sex: Male
  Weight: 64.85 kg

DRUGS (1)
  1. LYRICA [Suspect]
     Indication: NEUROPATHY PERIPHERAL
     Dosage: 75 MG, 2X/DAY
     Dates: start: 20140422

REACTIONS (3)
  - Euphoric mood [Unknown]
  - Vision blurred [Unknown]
  - Decreased appetite [Unknown]
